FAERS Safety Report 5248330-8 (Version None)
Quarter: 2007Q1

REPORT INFORMATION
  Report Type: 
  Country: None (occurrence: None)
  Receive Date: 20070227
  Receipt Date: 20070222
  Transmission Date: 20070707
  Serious: Yes (Other)
  Sender: FDA-Public Use
  Company Number: AT-BOEHRINGER INGELHEIM PHARMACEUTICALS, INC.-2007-DE-01093GD

PATIENT
  Age: 76 Year
  Sex: Male

DRUGS (4)
  1. DIPYRIDAMOLE [Suspect]
     Indication: ANTIPLATELET THERAPY
  2. ASPIRIN [Suspect]
     Indication: ANTIPLATELET THERAPY
  3. ASPIRIN [Suspect]
  4. CLOPIDOGREL [Suspect]
     Indication: ANTIPLATELET THERAPY

REACTIONS (6)
  - ABDOMINAL DISCOMFORT [None]
  - CEREBRAL INFARCTION [None]
  - CEREBRAL ISCHAEMIA [None]
  - PRURITUS [None]
  - REBOUND EFFECT [None]
  - THROMBOSIS IN DEVICE [None]
